FAERS Safety Report 20900107 (Version 1)
Quarter: 2022Q2

REPORT INFORMATION
  Report Type: Spontaneous
  Country: CN (occurrence: None)
  Receive Date: 20220601
  Receipt Date: 20220601
  Transmission Date: 20220721
  Serious: Yes (Other)
  Sender: FDA-Public Use
  Company Number: 2022A199427

PATIENT
  Age: 25783 Day
  Sex: Female

DRUGS (5)
  1. OSIMERTINIB MESYLATE [Suspect]
     Active Substance: OSIMERTINIB MESYLATE
     Indication: Radiotherapy
     Route: 048
     Dates: start: 20220228, end: 20220301
  2. BICYCLOL [Concomitant]
     Active Substance: BICYCLOL
     Indication: Radiotherapy
     Route: 048
     Dates: start: 20220211, end: 20220301
  3. POTASSIUM CHLORIDE [Concomitant]
     Active Substance: POTASSIUM CHLORIDE
     Indication: Radiotherapy
     Route: 048
     Dates: start: 20220211, end: 20220301
  4. BENAZEPRIL HYDROCHLORIDE [Concomitant]
     Active Substance: BENAZEPRIL HYDROCHLORIDE
     Indication: Radiotherapy
     Route: 048
     Dates: start: 20220210, end: 20220301
  5. AMLODIPINE BESYLATE [Concomitant]
     Active Substance: AMLODIPINE BESYLATE
     Indication: Radiotherapy
     Route: 048
     Dates: start: 20220210, end: 20220301

REACTIONS (1)
  - Myelosuppression [Recovering/Resolving]

NARRATIVE: CASE EVENT DATE: 20220317
